FAERS Safety Report 9432891 (Version 1)
Quarter: 2013Q3

REPORT INFORMATION
  Report Type: Spontaneous
  Country: CA (occurrence: CA)
  Receive Date: 20130731
  Receipt Date: 20130731
  Transmission Date: 20140515
  Serious: Yes (Death, Hospitalization)
  Sender: FDA-Public Use
  Company Number: CA-ACTELION-A-US2013-86181

PATIENT
  Age: 86 Year
  Sex: Female
  Weight: 55.9 kg

DRUGS (13)
  1. TRACLEER [Suspect]
     Indication: PULMONARY ARTERIAL HYPERTENSION
     Dosage: UNK
     Route: 048
     Dates: start: 20130424
  2. VITAMIN D [Concomitant]
     Dosage: 1000 U, QD
  3. REPLAVITE [Concomitant]
     Dosage: ONE DAILY
  4. BISOPROLOL [Concomitant]
  5. COUMADIN [Concomitant]
  6. LASIX [Concomitant]
     Dosage: 60 MG, BID
  7. OXAZEPAM [Concomitant]
     Dosage: 20 UNK, QD
  8. CALCIUM [Concomitant]
     Dosage: 500 UNK, BID
  9. FERROUS GLUCONATE [Concomitant]
     Dosage: 600 UNK, QD
  10. ATORVASTATIN [Concomitant]
     Dosage: 10 UNK, QD
  11. RABEPRAZOLE [Concomitant]
     Dosage: 20 UNK, QD
  12. ALDACTONE [Concomitant]
     Dosage: 25 UNK, QD
  13. RAMIPRIL [Concomitant]
     Dosage: 10 UNK, QD

REACTIONS (4)
  - Right ventricular failure [Fatal]
  - Condition aggravated [Fatal]
  - Low cardiac output syndrome [Fatal]
  - Drug ineffective [Fatal]
